FAERS Safety Report 5602045-2 (Version None)
Quarter: 2008Q1

REPORT INFORMATION
  Report Type: 
  Country: None (occurrence: None)
  Receive Date: 20080111
  Receipt Date: 20070817
  Transmission Date: 20080703
  Serious: Yes (Other)
  Sender: FDA-Public Use
  Company Number: HQWYE903129SEP03

PATIENT
  Age: 64 Year
  Sex: Female
  Weight: 64.47 kg

DRUGS (5)
  1. PREMPRO [Suspect]
     Dosage: ORAL
     Route: 048
     Dates: start: 19941101, end: 20020501
  2. CYCRIN [Suspect]
  3. ESTRACE [Suspect]
     Dosage: ORAL
     Route: 048
  4. PREMARIN [Suspect]
     Dates: start: 19940101
  5. PROVERA [Suspect]

REACTIONS (1)
  - OVARIAN CANCER METASTATIC [None]
